FAERS Safety Report 24107907 (Version 1)
Quarter: 2024Q3

REPORT INFORMATION
  Report Type: Report from Study
  Country: US (occurrence: None)
  Receive Date: 20240718
  Receipt Date: 20240718
  Transmission Date: 20241017
  Serious: Yes (Hospitalization)
  Sender: ASTRAZENECA
  Company Number: 2020SE34809

PATIENT
  Age: 79 Year
  Sex: Female

DRUGS (12)
  1. FASENRA [Suspect]
     Active Substance: BENRALIZUMAB
     Indication: Asthma
     Dosage: 30MG/ML TWICE A MONTH
     Route: 058
     Dates: start: 20190514
  2. OMEPRAZOLE [Concomitant]
     Active Substance: OMEPRAZOLE
  3. METOPROLOL SUS [Concomitant]
  4. SERTRALINE [Concomitant]
     Active Substance: SERTRALINE HYDROCHLORIDE
  5. TRESIBA FLEX [Concomitant]
     Dosage: 200 UNIT
  6. CEFDINIR [Concomitant]
     Active Substance: CEFDINIR
  7. OXYCODONE AND ACETAMINOPHEN [Concomitant]
     Active Substance: ACETAMINOPHEN\OXYCODONE HYDROCHLORIDE
     Dosage: 5-325 MG
  8. PREDNISONE [Concomitant]
     Active Substance: PREDNISONE
  9. XARELTO [Concomitant]
     Active Substance: RIVAROXABAN
  10. QUETIAPINE [Concomitant]
     Active Substance: QUETIAPINE
  11. DILTIAZEM [Concomitant]
     Active Substance: DILTIAZEM
  12. ATORVASTATIN [Concomitant]
     Active Substance: ATORVASTATIN

REACTIONS (1)
  - Influenza [Unknown]
